FAERS Safety Report 25135781 (Version 1)
Quarter: 2025Q1

REPORT INFORMATION
  Report Type: Spontaneous
  Country: US (occurrence: US)
  Receive Date: 20250328
  Receipt Date: 20250328
  Transmission Date: 20250409
  Serious: Yes (Other)
  Sender: CHEPLAPHARM
  Company Number: US-ROCHE-10000202123

PATIENT
  Age: 51 Year
  Sex: Female

DRUGS (10)
  1. CLONAZEPAM [Suspect]
     Active Substance: CLONAZEPAM
     Indication: Muscle spasms
     Dosage: DAILY DOSE: 0.5 MILLIGRAM
     Route: 048
  2. OCREVUS [Suspect]
     Active Substance: OCRELIZUMAB
     Indication: Relapsing multiple sclerosis
     Route: 042
     Dates: start: 202001
  3. SOMA [Concomitant]
     Active Substance: CARISOPRODOL
     Indication: Muscle spasticity
     Dosage: AT NIGHT
     Route: 048
  4. VITAMIN D3 [Concomitant]
     Active Substance: CHOLECALCIFEROL
  5. FLEXERIL [Concomitant]
     Active Substance: CYCLOBENZAPRINE HYDROCHLORIDE
     Dosage: DAILY DOSE: 20 MILLIGRAM
     Dates: start: 2023
  6. ZETIA [Concomitant]
     Active Substance: EZETIMIBE
     Dosage: DAILY DOSE: 10 MILLIGRAM
  7. TRILEPTAL [Concomitant]
     Active Substance: OXCARBAZEPINE
     Dosage: DAILY DOSE: 600 MILLIGRAM
     Route: 048
  8. ELAVIL [Concomitant]
     Active Substance: AMITRIPTYLINE HYDROCHLORIDE
     Indication: Headache
     Dosage: DAILY DOSE: 10 MILLIGRAM
  9. GABAPENTIN [Concomitant]
     Active Substance: GABAPENTIN
     Indication: Neuralgia
     Route: 048
     Dates: start: 20250218, end: 20250312
  10. TIZANIDINE [Concomitant]
     Active Substance: TIZANIDINE
     Indication: Muscle spasms
     Route: 048
     Dates: start: 2010

REACTIONS (17)
  - Central nervous system lesion [Not Recovered/Not Resolved]
  - Multiple sclerosis [Recovered/Resolved]
  - Neuralgia [Unknown]
  - Electric shock sensation [Unknown]
  - COVID-19 [Unknown]
  - Nausea [Unknown]
  - Somnolence [Unknown]
  - Headache [Unknown]
  - Pain [Unknown]
  - Asthenia [Unknown]
  - Arthralgia [Unknown]
  - Myalgia [Unknown]
  - Nervousness [Unknown]
  - Anxiety [Unknown]
  - Off label use [Unknown]
  - Muscle spasms [Unknown]
  - Hypotonia [Recovered/Resolved]

NARRATIVE: CASE EVENT DATE: 20210101
